FAERS Safety Report 7539225-5 (Version None)
Quarter: 2011Q2

REPORT INFORMATION
  Report Type: 
  Country: None (occurrence: None)
  Receive Date: 20110610
  Receipt Date: 20110526
  Transmission Date: 20111010
  Serious: Yes (Hospitalization)
  Sender: FDA-Public Use
  Company Number: ES-JNJFOC-20110512859

PATIENT
  Age: 22 Year
  Sex: Male

DRUGS (7)
  1. PENTASA [Suspect]
     Indication: COLITIS ULCERATIVE
     Route: 054
     Dates: start: 20101201, end: 20110103
  2. MESALAMINE [Suspect]
     Indication: COLITIS ULCERATIVE
     Route: 048
     Dates: start: 20110103, end: 20110107
  3. CIPROFLOXACIN [Concomitant]
     Indication: PRODUCT USED FOR UNKNOWN INDICATION
     Route: 048
  4. REMICADE [Suspect]
     Indication: COLITIS ULCERATIVE
     Route: 042
     Dates: start: 20101201
  5. METHYLPREDNISOLONE [Concomitant]
     Indication: PRODUCT USED FOR UNKNOWN INDICATION
  6. MESALAMINE [Suspect]
     Indication: COLITIS ULCERATIVE
     Route: 048
     Dates: start: 20101201, end: 20110103
  7. NATECAL D [Concomitant]
     Indication: PRODUCT USED FOR UNKNOWN INDICATION

REACTIONS (1)
  - PANCREATITIS ACUTE [None]
